FAERS Safety Report 13074112 (Version 1)
Quarter: 2016Q4

REPORT INFORMATION
  Report Type: Spontaneous
  Country: CN (occurrence: CN)
  Receive Date: 20161229
  Receipt Date: 20161229
  Transmission Date: 20170207
  Serious: Yes (Other)
  Sender: FDA-Public Use
  Company Number: CN-ROCHE-1873465

PATIENT
  Age: 56 Year
  Sex: Male

DRUGS (2)
  1. ACTILYSE [Suspect]
     Active Substance: ALTEPLASE
     Indication: THROMBOLYSIS
     Dosage: 6.3 MG WAS FIRST INJECTED ACCORDING TO BODY WEIGHT, AND THE LEFT 56.7 MG WAS INTRAVENOUSLY INFUSED W
     Route: 042
  2. ACTILYSE [Suspect]
     Active Substance: ALTEPLASE
     Dosage: 6.3 MG WAS FIRST INJECTED ACCORDING TO BODY WEIGHT, AND THE LEFT 56.7 MG WAS INTRAVENOUSLY INFUSED W
     Route: 042

REACTIONS (1)
  - Vascular occlusion [Recovered/Resolved]
